FAERS Safety Report 11139381 (Version 2)
Quarter: 2015Q3

REPORT INFORMATION
  Report Type: Spontaneous
  Country: US (occurrence: US)
  Receive Date: 20150527
  Receipt Date: 20150714
  Transmission Date: 20151125
  Serious: No
  Sender: FDA-Public Use
  Company Number: US-009507513-1505USA006556

PATIENT
  Sex: Female
  Weight: 63.49 kg

DRUGS (1)
  1. BELSOMRA [Suspect]
     Active Substance: SUVOREXANT
     Dosage: UNK, THE LOWEST AVAILABLE DOSE
     Route: 048

REACTIONS (4)
  - Somnolence [Unknown]
  - Sluggishness [Recovered/Resolved]
  - Sedation [Recovered/Resolved]
  - Middle insomnia [Recovered/Resolved]
